FAERS Safety Report 6571256-4 (Version None)
Quarter: 2010Q1

REPORT INFORMATION
  Report Type: 
  Country: None (occurrence: None)
  Receive Date: 20100129
  Receipt Date: 20100123
  Transmission Date: 20100710
  Serious: Yes (Death)
  Sender: FDA-Public Use
  Company Number: B0546846A

PATIENT
  Age: 5 Year
  Sex: Male

DRUGS (7)
  1. ONDANSETRON HYDROCHLORIDE (FORMULATION UNKNOWN) (ONDANSETRON HYDROCHLO [Suspect]
     Indication: VOMITING
     Dosage: SUBLINGUAL
     Route: 060
     Dates: start: 20081102
  2. PARACETAMOL [Concomitant]
  3. IBUPROFEN [Concomitant]
  4. LORATADINE [Concomitant]
  5. CEFTRIAXONE [Concomitant]
  6. AMOX.TRIHYD+POT.CLAVULAN [Concomitant]
  7. LORATADINE [Concomitant]

REACTIONS (14)
  - ACIDOSIS [None]
  - BLOOD POTASSIUM INCREASED [None]
  - BRONCHOPNEUMONIA [None]
  - CARDIAC ARREST [None]
  - DEPRESSED LEVEL OF CONSCIOUSNESS [None]
  - ENTEROVIRUS INFECTION [None]
  - HYPERTHERMIA MALIGNANT [None]
  - LIVER DISORDER [None]
  - MUSCULOSKELETAL STIFFNESS [None]
  - MYOPATHY [None]
  - PNEUMONIA [None]
  - SEROTONIN SYNDROME [None]
  - THROMBOSIS [None]
  - VENTRICULAR TACHYCARDIA [None]
